FAERS Safety Report 9376904 (Version 4)
Quarter: 2014Q2

REPORT INFORMATION
  Report Type: Spontaneous
  Country: DK (occurrence: DK)
  Receive Date: 20130701
  Receipt Date: 20140519
  Transmission Date: 20141212
  Serious: Yes (Other)
  Sender: FDA-Public Use
  Company Number: DK-JNJFOC-20130615664

PATIENT
  Age: 68 Year
  Sex: Female
  Weight: 90 kg

DRUGS (15)
  1. REMICADE [Suspect]
     Indication: RHEUMATOID ARTHRITIS
     Dosage: EVERY 0, 2, 6 AND THEN 8 WEEKS
     Route: 042
     Dates: start: 20100603
  2. REMICADE [Suspect]
     Indication: RHEUMATOID ARTHRITIS
     Route: 042
     Dates: start: 20130306, end: 20130502
  3. METHOTREXAAT SANDOZ [Concomitant]
     Indication: ARTHRITIS
     Route: 065
     Dates: start: 20060808
  4. FOLIMET [Concomitant]
     Indication: ARTHRITIS
     Route: 065
  5. IBUMETIN [Concomitant]
     Indication: ARTHRITIS
     Route: 065
  6. PAMOL [Concomitant]
     Indication: ARTHRITIS
     Route: 065
  7. COZAAR [Concomitant]
     Indication: HYPERTENSION
     Route: 065
  8. NORVASC [Concomitant]
     Indication: HYPERTENSION
     Route: 065
  9. SELO-ZOK [Concomitant]
     Indication: HYPERTENSION
     Route: 065
  10. HJERTEMAGNYL [Concomitant]
     Indication: HYPERTENSION
     Route: 065
  11. FUROSEMID [Concomitant]
     Indication: HYPERTENSION
     Route: 065
  12. KALEORID [Concomitant]
     Indication: HYPERTENSION
     Route: 065
  13. CRESTOR [Concomitant]
     Indication: HYPERCHOLESTEROLAEMIA
     Route: 065
  14. JANUVIA [Concomitant]
     Indication: TYPE 2 DIABETES MELLITUS
     Route: 065
  15. PLANTAGO OVATA [Concomitant]
     Route: 065

REACTIONS (2)
  - Breast cancer [Not Recovered/Not Resolved]
  - Metastases to lymph nodes [Recovered/Resolved]
